FAERS Safety Report 25031760 (Version 1)
Quarter: 2025Q1

REPORT INFORMATION
  Report Type: Spontaneous
  Country: US (occurrence: None)
  Receive Date: 20250301
  Receipt Date: 20250301
  Transmission Date: 20250408
  Serious: Yes (Death, Life-Threatening, Hospitalization)
  Sender: FDA-CTU
  Company Number: None

PATIENT
  Age: 68 Year
  Sex: Female
  Weight: 76.5 kg

DRUGS (1)
  1. JARDIANCE [Suspect]
     Active Substance: EMPAGLIFLOZIN
     Indication: Diabetes mellitus
     Route: 048
     Dates: start: 20230501, end: 20231211

REACTIONS (4)
  - Fournier^s gangrene [None]
  - White blood cell count increased [None]
  - Impaired healing [None]
  - Leg amputation [None]

NARRATIVE: CASE EVENT DATE: 20231211
